FAERS Safety Report 4317996-9 (Version None)
Quarter: 2004Q1

REPORT INFORMATION
  Report Type: 
  Country: None (occurrence: None)
  Receive Date: 20040316
  Receipt Date: 20040305
  Transmission Date: 20041129
  Serious: Yes (Hospitalization, Other)
  Sender: FDA-Public Use
  Company Number: PHBS2004FR03237

PATIENT
  Age: 40 Year
  Sex: Male

DRUGS (5)
  1. CYCLOSPORINE [Suspect]
     Indication: RENAL TRANSPLANT
     Route: 065
  2. ATGAM [Concomitant]
  3. CORTICOSTEROIDS [Concomitant]
  4. ANTICOAGULANTS [Concomitant]
  5. AZATHIOPRINE [Concomitant]

REACTIONS (3)
  - CYTOMEGALOVIRUS INFECTION [None]
  - DEEP VEIN THROMBOSIS [None]
  - PULMONARY EMBOLISM [None]
